FAERS Safety Report 15965240 (Version 1)
Quarter: 2019Q1

REPORT INFORMATION
  Report Type: Spontaneous
  Country: US (occurrence: US)
  Receive Date: 20190215
  Receipt Date: 20190215
  Transmission Date: 20190418
  Serious: Yes (Hospitalization)
  Sender: FDA-Public Use
  Company Number: US-TEVA-2019-US-1009444

PATIENT
  Age: 71 Year
  Sex: Female

DRUGS (2)
  1. WARFARIN TABLET TEVA [Suspect]
     Active Substance: WARFARIN
     Indication: ANTICOAGULANT THERAPY
     Route: 065
     Dates: start: 20181210
  2. WARFARIN TABLET TEVA [Suspect]
     Active Substance: WARFARIN
     Route: 065

REACTIONS (5)
  - Product substitution issue [Unknown]
  - Atrial fibrillation [Unknown]
  - Fluid retention [Unknown]
  - Cardiac disorder [Unknown]
  - Abdominal discomfort [Unknown]

NARRATIVE: CASE EVENT DATE: 20190110
